FAERS Safety Report 4907428-1 (Version None)
Quarter: 2006Q1

REPORT INFORMATION
  Report Type: 
  Country: None (occurrence: None)
  Receive Date: 20060207
  Receipt Date: 20060126
  Transmission Date: 20060701
  Serious: Yes (Other)
  Sender: FDA-Public Use
  Company Number: 2006014353

PATIENT
  Age: 75 Year
  Sex: Female
  Weight: 68.0396 kg

DRUGS (3)
  1. LIPITOR [Suspect]
     Indication: BLOOD CHOLESTEROL INCREASED
     Dosage: 10 MG (10 MG, 1 IN 1 D), ORAL
     Route: 048
  2. NEXUM (ESOMEPRAZOLE) [Concomitant]
  3. ASPIRIN [Concomitant]

REACTIONS (3)
  - CORONARY ARTERY OCCLUSION [None]
  - DYSPNOEA [None]
  - MYALGIA [None]
